FAERS Safety Report 25732367 (Version 1)
Quarter: 2025Q3

REPORT INFORMATION
  Report Type: Spontaneous
  Country: US (occurrence: US)
  Receive Date: 20250827
  Receipt Date: 20250827
  Transmission Date: 20251020
  Serious: Yes (Other)
  Sender: AMERICAN REGENT
  Company Number: US-AMERICAN REGENT INC-2025003247

PATIENT
  Age: 89 Year
  Sex: Male

DRUGS (2)
  1. FERRIC CARBOXYMALTOSE [Suspect]
     Active Substance: FERRIC CARBOXYMALTOSE
     Indication: Iron deficiency anaemia
     Route: 042
     Dates: start: 20250806, end: 20250806
  2. FERRIC CARBOXYMALTOSE [Suspect]
     Active Substance: FERRIC CARBOXYMALTOSE
     Route: 042
     Dates: start: 20250820, end: 20250820

REACTIONS (2)
  - Oedema [Recovering/Resolving]
  - Dysentery [Recovering/Resolving]

NARRATIVE: CASE EVENT DATE: 20250801
